FAERS Safety Report 4463794-5 (Version None)
Quarter: 2004Q3

REPORT INFORMATION
  Report Type: 
  Country: None (occurrence: None)
  Receive Date: 20040929
  Receipt Date: 20040916
  Transmission Date: 20050211
  Serious: Yes (Other)
  Sender: FDA-Public Use
  Company Number: DEU-2004-0000995

PATIENT
  Age: 82 Year
  Sex: Female
  Weight: 64 kg

DRUGS (7)
  1. OXYGESIC 10 MG (OXY CR TAB 10 MG) (OXYCODONE HYDROCHLORIDE) CR TABLET [Suspect]
     Indication: PAIN
     Dosage: 10 MG, BID, ORAL
     Route: 048
     Dates: start: 20040628, end: 20040801
  2. TRAMAL - SLOW RELEASE [Concomitant]
  3. ZOLPIDEM TARTRATE [Concomitant]
  4. LACTULOSE [Concomitant]
  5. VIOXX [Concomitant]
  6. ATENOLOL [Concomitant]
  7. DELMUNO (FELODIPINE, RAMIPRIL) [Concomitant]

REACTIONS (4)
  - CONFUSIONAL STATE [None]
  - DISORIENTATION [None]
  - FALL [None]
  - MEDICATION ERROR [None]
